FAERS Safety Report 23321894 (Version 1)
Quarter: 2023Q4

REPORT INFORMATION
  Report Type: Spontaneous
  Country: BR (occurrence: BR)
  Receive Date: 20231220
  Receipt Date: 20231220
  Transmission Date: 20240110
  Serious: Yes (Other)
  Sender: FDA-Public Use
  Company Number: BR-002147023-NVSC2023BR215396

PATIENT
  Age: 76 Year
  Sex: Male
  Weight: 68 kg

DRUGS (8)
  1. ACLASTA [Suspect]
     Active Substance: ZOLEDRONIC ACID
     Indication: Osteoporosis
     Dosage: UNK (START AND STOP DATE: 10 YEARS AGO)
     Route: 065
  2. LUCENTIS [Suspect]
     Active Substance: RANIBIZUMAB
     Indication: Macular degeneration
     Dosage: UNK (FREQUENCY WAS EVERY 60 OR 120 DAYS (DEPENDING ON MEDICAL EVALUATION)
     Route: 047
     Dates: end: 2020
  3. CALCIUM [Concomitant]
     Active Substance: CALCIUM
     Indication: Osteoporosis
     Dosage: 1 DOSAGE FORM, QD (START DATE: 15 YEARS  AGO)
     Route: 048
  4. DUTASTERIDE [Concomitant]
     Active Substance: DUTASTERIDE
     Indication: Benign prostatic hyperplasia
     Dosage: 1 DOSAGE FORM, QD
     Route: 048
     Dates: start: 2015
  5. AFLIBERCEPT [Concomitant]
     Active Substance: AFLIBERCEPT
     Indication: Macular degeneration
     Dosage: UNK (EVERY 60 OR 120 DAYS (DEPENDING ON MEDICAL EVALUATION) IN THE EYE)
     Route: 065
     Dates: start: 2020
  6. LUTEIN ZEAXANTHIN [Concomitant]
     Indication: Macular degeneration
     Dosage: 1 DOSAGE FORM, QD (AREDES OR  PRESEVISION)
     Route: 048
  7. SILDENAFIL [Concomitant]
     Active Substance: SILDENAFIL
     Indication: Sexually active
     Dosage: 1 DOSAGE FORM, PRN
     Route: 048
     Dates: start: 2000
  8. TADALAFIL [Concomitant]
     Active Substance: TADALAFIL
     Indication: Sexually active
     Dosage: 1 DOSAGE FORM, PRN
     Route: 048
     Dates: start: 2000

REACTIONS (7)
  - Femur fracture [Recovered/Resolved]
  - Muscular weakness [Recovered/Resolved]
  - Fall [Recovered/Resolved]
  - Road traffic accident [Recovered/Resolved]
  - Patella fracture [Recovered/Resolved]
  - Lower limb fracture [Recovered/Resolved]
  - Abdominal discomfort [Not Recovered/Not Resolved]

NARRATIVE: CASE EVENT DATE: 20190101
